FAERS Safety Report 6762998-6 (Version None)
Quarter: 2010Q2

REPORT INFORMATION
  Report Type: 
  Country: None (occurrence: None)
  Receive Date: 20100609
  Receipt Date: 20100601
  Transmission Date: 20101027
  Serious: Yes (Hospitalization, Other)
  Sender: FDA-Public Use
  Company Number: US-ROCHE-659110

PATIENT
  Sex: Female
  Weight: 71.2 kg

DRUGS (5)
  1. ACCUTANE [Suspect]
     Route: 048
     Dates: start: 20000905
  2. ACCUTANE [Suspect]
     Route: 048
     Dates: start: 20000927
  3. ACCUTANE [Suspect]
     Route: 048
     Dates: start: 20001102
  4. ACCUTANE [Suspect]
     Route: 048
     Dates: start: 20001122, end: 20010412
  5. VITAMIN E [Concomitant]

REACTIONS (14)
  - ACUTE SINUSITIS [None]
  - ARTHRALGIA [None]
  - BLOOD TRIGLYCERIDES INCREASED [None]
  - COLITIS ULCERATIVE [None]
  - CONJUNCTIVITIS [None]
  - CROHN'S DISEASE [None]
  - DEPRESSION [None]
  - DRY SKIN [None]
  - HEADACHE [None]
  - INFLAMMATORY BOWEL DISEASE [None]
  - MOOD SWINGS [None]
  - NEPHROLITHIASIS [None]
  - RASH [None]
  - SUICIDAL IDEATION [None]
